FAERS Safety Report 13953862 (Version 1)
Quarter: 2017Q3

REPORT INFORMATION
  Report Type: Spontaneous
  Country: US (occurrence: US)
  Receive Date: 20170911
  Receipt Date: 20170911
  Transmission Date: 20171128
  Serious: No
  Sender: FDA-Public Use
  Company Number: US-TEVA-706884USA

PATIENT
  Sex: Female

DRUGS (17)
  1. IMITREX [Concomitant]
     Active Substance: SUMATRIPTAN SUCCINATE
  2. SINGULAIR [Concomitant]
     Active Substance: MONTELUKAST SODIUM
  3. PREVACID [Concomitant]
     Active Substance: LANSOPRAZOLE
  4. MEDROXYPROGESTERONE [Concomitant]
     Active Substance: MEDROXYPROGESTERONE
  5. NEURONTIN [Concomitant]
     Active Substance: GABAPENTIN
  6. CLARITIN [Concomitant]
     Active Substance: LORATADINE
  7. ZOMIG [Concomitant]
     Active Substance: ZOLMITRIPTAN
  8. ROTHACIN [Concomitant]
  9. COD-LIVER OIL [Concomitant]
     Active Substance: FISH OIL
  10. MAGNESIUM [Concomitant]
     Active Substance: MAGNESIUM
  11. PREDNISONE. [Concomitant]
     Active Substance: PREDNISONE
  12. PROZAC [Concomitant]
     Active Substance: FLUOXETINE HYDROCHLORIDE
  13. TOPAMAX [Concomitant]
     Active Substance: TOPIRAMATE
  14. VENLAFAXINE [Suspect]
     Active Substance: VENLAFAXINE HYDROCHLORIDE
     Route: 065
  15. NABUMETONE. [Concomitant]
     Active Substance: NABUMETONE
  16. CENTRUM [Concomitant]
     Active Substance: VITAMINS
  17. LISINOPRIL. [Concomitant]
     Active Substance: LISINOPRIL

REACTIONS (3)
  - Headache [Recovered/Resolved]
  - Migraine [Unknown]
  - Lactose intolerance [Recovered/Resolved]
